FAERS Safety Report 7916556-8 (Version None)
Quarter: 2011Q4

REPORT INFORMATION
  Report Type: 
  Country: None (occurrence: None)
  Receive Date: 20111116
  Receipt Date: 20110619
  Transmission Date: 20120403
  Serious: Yes (Death)
  Sender: FDA-Public Use
  Company Number: ES-RANBAXY-2011RR-50396

PATIENT
  Age: 4 Month
  Sex: Female

DRUGS (2)
  1. DOMPERIDONE [Suspect]
     Indication: GASTROOESOPHAGEAL REFLUX DISEASE
     Dosage: UNK
     Route: 048
     Dates: start: 20110228, end: 20110327
  2. RANITIDINE [Suspect]
     Indication: GASTROOESOPHAGEAL REFLUX DISEASE
     Dosage: UNK
     Route: 048
     Dates: start: 20110228, end: 20110327

REACTIONS (1)
  - SUDDEN CARDIAC DEATH [None]
